FAERS Safety Report 8918241 (Version 1)
Quarter: 2012Q4

REPORT INFORMATION
  Report Type: 
  Country: US (occurrence: US)
  Receive Date: 20121120
  Receipt Date: 20121120
  Transmission Date: 20130627
  Serious: No
  Sender: FDA-Public Use
  Company Number: US-ASTRAZENECA-2012SE25004

PATIENT
  Age: 47 Year
  Sex: Female

DRUGS (5)
  1. NEXIUM [Suspect]
     Route: 048
  2. NEXIUM [Suspect]
     Route: 048
  3. CRESTOR [Suspect]
     Route: 048
  4. THYROID MEDICATION [Concomitant]
     Indication: THYROID DISORDER
  5. BLOOD PRESSURE MEDICATION [Concomitant]
     Indication: BLOOD PRESSURE ABNORMAL

REACTIONS (7)
  - Barrett^s oesophagus [Unknown]
  - Feeling abnormal [Unknown]
  - Sinusitis [Unknown]
  - Malaise [Unknown]
  - Abdominal discomfort [Unknown]
  - Intentional drug misuse [Unknown]
  - Off label use [Unknown]
